FAERS Safety Report 20015962 (Version 1)
Quarter: 2021Q4

REPORT INFORMATION
  Report Type: Spontaneous
  Country: US (occurrence: None)
  Receive Date: 20211102
  Receipt Date: 20211102
  Transmission Date: 20220304
  Serious: Yes (Hospitalization)
  Sender: FDA-Public Use
  Company Number: None

PATIENT
  Age: 70 Year
  Sex: Male
  Weight: 158.3 kg

DRUGS (16)
  1. DAPTOMYCIN [Suspect]
     Active Substance: DAPTOMYCIN
     Indication: Osteomyelitis
     Dosage: FREQUENCY : DAILY;?
     Route: 042
     Dates: start: 20211004, end: 20211020
  2. ERTAPENEM [Suspect]
     Active Substance: ERTAPENEM
     Indication: Osteomyelitis
     Dosage: FREQUENCY : DAILY;?
     Route: 042
     Dates: start: 20211004, end: 20211020
  3. BUMEX [Concomitant]
     Active Substance: BUMETANIDE
  4. JANUVIA [Concomitant]
     Active Substance: SITAGLIPTIN PHOSPHATE
  5. LANTUS [Concomitant]
     Active Substance: INSULIN GLARGINE
  6. LIPITOR [Concomitant]
     Active Substance: ATORVASTATIN CALCIUM
  7. NORCO [Concomitant]
     Active Substance: ACETAMINOPHEN\HYDROCODONE BITARTRATE
  8. NOVOLOG [Concomitant]
     Active Substance: INSULIN ASPART
  9. VITAMIN D3 [Concomitant]
     Active Substance: CHOLECALCIFEROL
  10. AMITRIPTYLINE [Concomitant]
     Active Substance: AMITRIPTYLINE
  11. BENAZEPRIL [Concomitant]
     Active Substance: BENAZEPRIL HYDROCHLORIDE
  12. HYDROCHLOROTHIAZIDE [Concomitant]
     Active Substance: HYDROCHLOROTHIAZIDE
  13. LOSARTAN [Concomitant]
     Active Substance: LOSARTAN
  14. METOPROLOL SUCCINATE [Concomitant]
     Active Substance: METOPROLOL SUCCINATE
  15. ROPINIROLE [Concomitant]
     Active Substance: ROPINIROLE
  16. ASPIRIN [Concomitant]
     Active Substance: ASPIRIN

REACTIONS (4)
  - Muscular weakness [None]
  - Dysarthria [None]
  - Fall [None]
  - Laboratory test abnormal [None]

NARRATIVE: CASE EVENT DATE: 20211020
